FAERS Safety Report 22067107 (Version 1)
Quarter: 2023Q1

REPORT INFORMATION
  Report Type: Spontaneous
  Country: FR (occurrence: FR)
  Receive Date: 20230306
  Receipt Date: 20230306
  Transmission Date: 20230418
  Serious: Yes (Hospitalization)
  Sender: FDA-Public Use
  Company Number: None

PATIENT
  Age: 50 Year
  Sex: Female
  Weight: 59 kg

DRUGS (1)
  1. RINVOQ [Suspect]
     Active Substance: UPADACITINIB
     Indication: Dermatitis atopic
     Dosage: FORM STRENGTH: 15 MG, ER
     Route: 048
     Dates: start: 20220506, end: 20230106

REACTIONS (1)
  - Peripheral T-cell lymphoma unspecified [Not Recovered/Not Resolved]

NARRATIVE: CASE EVENT DATE: 20221001
